FAERS Safety Report 23876423 (Version 1)
Quarter: 2024Q2

REPORT INFORMATION
  Report Type: Report from Study
  Country: US (occurrence: US)
  Receive Date: 20240520
  Receipt Date: 20240520
  Transmission Date: 20240715
  Serious: Yes (Other)
  Sender: FDA-Public Use
  Company Number: US-ABBVIE-5762024

PATIENT
  Age: 36 Year
  Sex: Male

DRUGS (1)
  1. HUMIRA [Suspect]
     Active Substance: ADALIMUMAB
     Indication: Psoriatic arthropathy
     Dosage: CITRATE FREE
     Route: 058
     Dates: start: 20230925, end: 20240301

REACTIONS (2)
  - Internal haemorrhage [Recovering/Resolving]
  - Gastrointestinal bacterial infection [Recovering/Resolving]

NARRATIVE: CASE EVENT DATE: 20240401
